FAERS Safety Report 16811296 (Version 1)
Quarter: 2019Q3

REPORT INFORMATION
  Report Type: Report from Study
  Country: GB (occurrence: GB)
  Receive Date: 20190916
  Receipt Date: 20190916
  Transmission Date: 20191005
  Serious: Yes (Hospitalization, Other)
  Sender: FDA-Public Use
  Company Number: GB-JNJFOC-20190905648

PATIENT

DRUGS (4)
  1. FOLIC ACID/FERROUS SULPHATE [Concomitant]
     Route: 048
  2. STELARA [Suspect]
     Active Substance: USTEKINUMAB
     Indication: CROHN^S DISEASE
     Route: 058
     Dates: start: 20180321, end: 20180711
  3. CALCEOS [Concomitant]
     Active Substance: CALCIUM CARBONATE\CHOLECALCIFEROL
     Dosage: 1 TABLET
     Route: 048
  4. HYOSCINE BUTYLBROMIDE W/METAMIZOLE SODIUM [Concomitant]
     Dosage: 10-20MG PRN, MAXIMUM DOSE 80MG DAILY
     Route: 048

REACTIONS (6)
  - Flank pain [Recovered/Resolved]
  - Pyrexia [Recovered/Resolved]
  - Diarrhoea [Recovered/Resolved]
  - Dysuria [Recovered/Resolved]
  - Vomiting [Recovered/Resolved]
  - Nausea [Recovering/Resolving]

NARRATIVE: CASE EVENT DATE: 201805
